FAERS Safety Report 14460563 (Version 6)
Quarter: 2021Q3

REPORT INFORMATION
  Report Type: Spontaneous
  Country: US (occurrence: US)
  Receive Date: 20180130
  Receipt Date: 20210813
  Transmission Date: 20211014
  Serious: No
  Sender: FDA-Public Use
  Company Number: US-PFIZER INC-2018037044

PATIENT
  Age: 5 Year
  Sex: Male

DRUGS (2)
  1. GENOTROPIN [Suspect]
     Active Substance: SOMATROPIN
     Dosage: 0.6 MG  (6 DAYS/WEEK)
  2. GENOTROPIN [Suspect]
     Active Substance: SOMATROPIN
     Dosage: 0.6 MG, DAILY

REACTIONS (5)
  - Incorrect dose administered [Unknown]
  - Device breakage [Unknown]
  - Device mechanical issue [Unknown]
  - Injection site extravasation [Unknown]
  - Drug dose omission by device [Unknown]

NARRATIVE: CASE EVENT DATE: 20180125
